FAERS Safety Report 14170458 (Version 1)
Quarter: 2017Q4

REPORT INFORMATION
  Report Type: Spontaneous
  Country: US (occurrence: None)
  Receive Date: 20171108
  Receipt Date: 20171108
  Transmission Date: 20180321
  Serious: Yes (Other)
  Sender: FDA-Public Use
  Company Number: None

PATIENT
  Age: 74 Year
  Sex: Male
  Weight: 91.63 kg

DRUGS (1)
  1. MELOXICAM 0.5%, GABAPENTIN 6% ORPHENADRIN 5% PARTA LIDOCAIN OINTMENT 5 [Suspect]
     Active Substance: GABAPENTIN\LIDOCAINE\MELOXICAM\ORPHENADRINE
     Indication: ARTHRALGIA
     Dosage: PART 1 102 GRAMS PER DOSE MIXED WITH NICKEL SIZE AMOUNT OF LIDOCAINE MIXED TOGETHER 304 TIME PER DAY I USED IT ONCE/DAY EXTERNAL MESSAGE TO KNEE JOINTS
     Route: 061
     Dates: start: 20170915, end: 20170922

REACTIONS (1)
  - Tinnitus [None]
